FAERS Safety Report 4472537-0 (Version None)
Quarter: 2004Q4

REPORT INFORMATION
  Report Type: 
  Country: None (occurrence: None)
  Receive Date: 20041007
  Receipt Date: 20040923
  Transmission Date: 20050328
  Serious: No
  Sender: FDA-Public Use
  Company Number: S04-USA-06316-01

PATIENT
  Age: 82 Year
  Sex: Female

DRUGS (8)
  1. NAMENDA [Suspect]
     Indication: DEMENTIA
     Dosage: 20 MG QD PO
     Route: 048
     Dates: end: 20040922
  2. NAMENDA [Suspect]
     Indication: DEMENTIA
     Dosage: 5 MG QD PO
     Route: 048
     Dates: start: 20040501
  3. NAMENDA [Suspect]
     Indication: DEMENTIA
     Dosage: 10 MG QD PO
     Route: 048
  4. NAMENDA [Suspect]
     Indication: DEMENTIA
     Dosage: 15 MG QD PO
     Route: 048
  5. ARICEPT [Concomitant]
  6. HYZAAR [Concomitant]
  7. LIPITOR [Concomitant]
  8. ANTIHISTAMINE [Concomitant]

REACTIONS (7)
  - ANOREXIA [None]
  - BALANCE DISORDER [None]
  - CONCUSSION [None]
  - CONFUSIONAL STATE [None]
  - FALL [None]
  - LACERATION [None]
  - SOMNOLENCE [None]
